FAERS Safety Report 4462300-9 (Version None)
Quarter: 2004Q3

REPORT INFORMATION
  Report Type: 
  Country: None (occurrence: None)
  Receive Date: 20040924
  Receipt Date: 20040913
  Transmission Date: 20050211
  Serious: Yes (Other)
  Sender: FDA-Public Use
  Company Number: 2004065529

PATIENT
  Age: 65 Year
  Sex: Female
  Weight: 54.4316 kg

DRUGS (4)
  1. ZITHROMAX [Suspect]
     Indication: ILL-DEFINED DISORDER
  2. ESOMEPRAZOLE (ESOMEPRAZOLE) [Concomitant]
  3. FEXOFENADINE HYDROCHLORIDE [Concomitant]
  4. ESTRADIOL [Concomitant]

REACTIONS (3)
  - DISEASE RECURRENCE [None]
  - GASTRITIS [None]
  - NASAL SEPTAL OPERATION [None]
